FAERS Safety Report 7751507-0 (Version None)
Quarter: 2011Q3

REPORT INFORMATION
  Report Type: 
  Country: None (occurrence: None)
  Receive Date: 20110914
  Receipt Date: 20110907
  Transmission Date: 20111222
  Serious: Yes (Other)
  Sender: FDA-Public Use
  Company Number: PHHY2010CA55015

PATIENT
  Sex: Female

DRUGS (1)
  1. SANDOSTATIN LAR [Suspect]
     Indication: GASTRINOMA
     Dosage: 30 MG, ONCE A MONTH.
     Route: 030
     Dates: start: 20060807

REACTIONS (3)
  - MUSCLE SPASMS [None]
  - PAIN [None]
  - WALKING DISABILITY [None]
